FAERS Safety Report 24672555 (Version 3)
Quarter: 2024Q4

REPORT INFORMATION
  Report Type: Spontaneous
  Country: US (occurrence: US)
  Receive Date: 20241127
  Receipt Date: 20241220
  Transmission Date: 20250115
  Serious: No
  Sender: SANOFI AVENTIS
  Company Number: US-SA-2024SA346178

PATIENT
  Sex: Male
  Weight: 80.726 kg

DRUGS (7)
  1. DUPIXENT [Suspect]
     Active Substance: DUPILUMAB
     Indication: Dermatitis
     Dosage: 4 ML, 1X
     Route: 058
  2. DUPIXENT [Suspect]
     Active Substance: DUPILUMAB
     Indication: Dermatitis atopic
     Dosage: 300 MG, QOW
     Route: 058
     Dates: start: 20241113
  3. OFLOXACIN [Concomitant]
     Active Substance: OFLOXACIN
  4. IPRATROPIUM BROMIDE [Concomitant]
     Active Substance: IPRATROPIUM BROMIDE
  5. FLUOCINOLONE ACETONIDE [Concomitant]
     Active Substance: FLUOCINOLONE ACETONIDE
  6. ERYTHROMYCIN [Concomitant]
     Active Substance: ERYTHROMYCIN
  7. AZELASTINE [Concomitant]
     Active Substance: AZELASTINE

REACTIONS (5)
  - Eye inflammation [Unknown]
  - Blepharitis [Unknown]
  - Product use in unapproved indication [Unknown]
  - Accidental exposure to product [Unknown]
  - Exposure via skin contact [Unknown]
